FAERS Safety Report 7625794-3 (Version None)
Quarter: 2011Q3

REPORT INFORMATION
  Report Type: 
  Country: None (occurrence: None)
  Receive Date: 20110721
  Receipt Date: 20110718
  Transmission Date: 20111222
  Serious: Yes (Death, Other)
  Sender: FDA-Public Use
  Company Number: PHFR2011GB03041

PATIENT
  Sex: Male

DRUGS (3)
  1. METHADONE HCL [Suspect]
  2. CLOZAPINE [Suspect]
     Indication: SCHIZOPHRENIA
     Route: 048
     Dates: start: 20080204
  3. DIAZEPAM [Suspect]
     Dosage: 10 MG/DAY
     Route: 048

REACTIONS (4)
  - CHRONIC OBSTRUCTIVE PULMONARY DISEASE [None]
  - CIRCULATORY COLLAPSE [None]
  - GENERAL PHYSICAL CONDITION ABNORMAL [None]
  - OVERDOSE [None]
